FAERS Safety Report 4664603-1 (Version None)
Quarter: 2005Q2

REPORT INFORMATION
  Report Type: 
  Country: None (occurrence: None)
  Receive Date: 20050518
  Receipt Date: 20050513
  Transmission Date: 20051028
  Serious: Yes (Hospitalization)
  Sender: FDA-Public Use
  Company Number: J200501448

PATIENT
  Age: 6 Year
  Sex: Male

DRUGS (11)
  1. SAWACILLIN [Suspect]
     Indication: STREPTOCOCCAL INFECTION
     Dosage: 200MG THREE TIMES PER DAY
     Route: 048
     Dates: start: 20050324, end: 20050401
  2. ONON [Concomitant]
     Route: 048
  3. NIPOLAZIN [Concomitant]
     Route: 048
  4. INTAL [Concomitant]
     Route: 031
  5. LIVOSTIN [Concomitant]
     Route: 045
  6. BIOFERMIN R [Concomitant]
     Indication: STREPTOCOCCAL INFECTION
     Route: 048
     Dates: start: 20050324
  7. MUCODYNE [Concomitant]
     Indication: STREPTOCOCCAL INFECTION
     Route: 048
     Dates: start: 20050324
  8. MEPTIN [Concomitant]
     Indication: STREPTOCOCCAL INFECTION
     Route: 048
     Dates: start: 20050324
  9. ASVERIN [Concomitant]
     Indication: STREPTOCOCCAL INFECTION
     Route: 048
     Dates: start: 20050324
  10. CALONAL [Concomitant]
     Indication: STREPTOCOCCAL INFECTION
     Route: 048
     Dates: start: 20050324
  11. FLOMOX [Concomitant]
     Dates: start: 20050401

REACTIONS (2)
  - EXANTHEM [None]
  - PRURITUS [None]
